FAERS Safety Report 9158548 (Version 2)
Quarter: 2013Q2

REPORT INFORMATION
  Report Type: Spontaneous
  Country: IE (occurrence: IE)
  Receive Date: 20130312
  Receipt Date: 20130410
  Transmission Date: 20140414
  Serious: Yes (Other)
  Sender: FDA-Public Use
  Company Number: CHPA2012IE025721

PATIENT
  Sex: Male

DRUGS (1)
  1. SCOPODERM TTS [Suspect]
     Indication: DROOLING
     Dosage: UNK,UNK
     Route: 062

REACTIONS (3)
  - Drooling [Unknown]
  - Condition aggravated [Unknown]
  - Drug ineffective for unapproved indication [Unknown]
